FAERS Safety Report 6732481-2 (Version None)
Quarter: 2010Q2

REPORT INFORMATION
  Report Type: 
  Country: None (occurrence: None)
  Receive Date: 20100519
  Receipt Date: 20100512
  Transmission Date: 20101027
  Serious: Yes (Death, Disabling, Other)
  Sender: FDA-Public Use
  Company Number: US-BAYER-200916379NA

PATIENT
  Age: 26 Year
  Sex: Female

DRUGS (10)
  1. MAGNEVIST [Suspect]
     Indication: NUCLEAR MAGNETIC RESONANCE IMAGING
  2. OMNISCAN [Suspect]
     Indication: NUCLEAR MAGNETIC RESONANCE IMAGING
     Dates: start: 20031215, end: 20031215
  3. OMNISCAN [Suspect]
     Dosage: TOTAL DAILY DOSE: 15 ML
     Dates: start: 20040607, end: 20040607
  4. OMNISCAN [Suspect]
     Dates: start: 20060109, end: 20060109
  5. OMNISCAN [Suspect]
     Dosage: TOTAL DAILY DOSE: 10 ML
     Dates: start: 20060807, end: 20060807
  6. OMNISCAN [Suspect]
     Dosage: TOTAL DAILY DOSE: 15 ML
     Dates: start: 20060720, end: 20060720
  7. OMNISCAN [Suspect]
     Dosage: TOTAL DAILY DOSE: 15 ML
     Dates: start: 20060814, end: 20060814
  8. OPTIMARK [Suspect]
     Indication: NUCLEAR MAGNETIC RESONANCE IMAGING
  9. MULTIHANCE [Suspect]
     Indication: NUCLEAR MAGNETIC RESONANCE IMAGING
  10. PROHANCE [Suspect]
     Indication: NUCLEAR MAGNETIC RESONANCE IMAGING

REACTIONS (8)
  - ANXIETY [None]
  - DEFORMITY [None]
  - EMOTIONAL DISTRESS [None]
  - FIBROSIS [None]
  - GENERAL PHYSICAL HEALTH DETERIORATION [None]
  - NEPHROGENIC SYSTEMIC FIBROSIS [None]
  - PAIN [None]
  - QUALITY OF LIFE DECREASED [None]
